FAERS Safety Report 5471987-3 (Version None)
Quarter: 2007Q3

REPORT INFORMATION
  Report Type: 
  Country: None (occurrence: None)
  Receive Date: 20070928
  Receipt Date: 20070927
  Transmission Date: 20080115
  Serious: Yes (Life-Threatening)
  Sender: FDA-Public Use
  Company Number: DE-BOEHRINGER INGELHEIM PHARMACEUTICALS, INC.-2007-DE-05764DE

PATIENT
  Sex: Female
  Weight: 66 kg

DRUGS (4)
  1. SPIRIVA [Suspect]
     Indication: EMPHYSEMA
     Route: 048
     Dates: start: 20070612, end: 20070815
  2. SPIRIVA [Suspect]
     Indication: ASTHMA
  3. SYMBICORT [Concomitant]
     Indication: EMPHYSEMA
     Route: 048
     Dates: start: 20070612, end: 20070815
  4. SYMBICORT [Concomitant]
     Indication: ASTHMA

REACTIONS (6)
  - ANOREXIA [None]
  - DRY MOUTH [None]
  - NAUSEA [None]
  - PRURITUS [None]
  - TONGUE COATED [None]
  - WEIGHT DECREASED [None]
